FAERS Safety Report 8313990-1 (Version None)
Quarter: 2012Q2

REPORT INFORMATION
  Report Type: 
  Country: None (occurrence: None)
  Receive Date: 20120426
  Receipt Date: 20110808
  Transmission Date: 20120825
  Serious: Yes (Other)
  Sender: FDA-Public Use
  Company Number: US-TEVA-US022316

PATIENT
  Sex: Male
  Weight: 77 kg

DRUGS (2)
  1. MARIJUANA [Suspect]
     Route: 055
  2. PROVIGIL [Suspect]
     Indication: NARCOLEPSY
     Dosage: 200 MILLIGRAM;
     Route: 048
     Dates: start: 20060413

REACTIONS (2)
  - HALLUCINATION, VISUAL [None]
  - HALLUCINATION, AUDITORY [None]
